FAERS Safety Report 24456848 (Version 1)
Quarter: 2024Q4

REPORT INFORMATION
  Report Type: Spontaneous
  Country: US (occurrence: None)
  Receive Date: 20241018
  Receipt Date: 20241018
  Transmission Date: 20250115
  Serious: No
  Sender: ADAMAS PHARMA
  Company Number: US-ADAMAS Pharma-ADM202408-002893

PATIENT

DRUGS (3)
  1. GOCOVRI [Suspect]
     Active Substance: AMANTADINE
     Indication: Product used for unknown indication
     Dosage: FOR A WEEK
  2. GOCOVRI [Suspect]
     Active Substance: AMANTADINE
     Dosage: FOR A WEEK
  3. GOCOVRI [Suspect]
     Active Substance: AMANTADINE

REACTIONS (10)
  - Paranasal sinus hyposecretion [Unknown]
  - Paranasal sinus haemorrhage [Unknown]
  - Dental caries [Unknown]
  - Visual impairment [Recovering/Resolving]
  - Eye pain [Unknown]
  - Eye irritation [Unknown]
  - Endodontic procedure [Unknown]
  - Vision blurred [Recovering/Resolving]
  - Dry eye [Unknown]
  - Dry mouth [Unknown]
